FAERS Safety Report 8452459-0 (Version None)
Quarter: 2012Q2

REPORT INFORMATION
  Report Type: 
  Country: None (occurrence: None)
  Receive Date: 20120620
  Receipt Date: 20120502
  Transmission Date: 20120825
  Serious: No
  Sender: FDA-Public Use
  Company Number: US-VERTEX PHARMACEUTICALS INC.-AE-2012-005244

PATIENT
  Sex: Male
  Weight: 59.474 kg

DRUGS (5)
  1. INCIVEK [Suspect]
     Indication: HEPATITIS C
     Route: 048
     Dates: start: 20120411
  2. PANTOPRAZOLE [Concomitant]
     Indication: GASTROOESOPHAGEAL REFLUX DISEASE
     Route: 048
  3. IBUPROFEN (ADVIL) [Concomitant]
     Indication: PAIN
     Route: 048
  4. PEGASYS [Concomitant]
     Indication: HEPATITIS C
     Route: 058
     Dates: start: 20120411
  5. RIBASPHERE [Concomitant]
     Indication: HEPATITIS C
     Route: 048
     Dates: start: 20120411

REACTIONS (7)
  - VOMITING [None]
  - MALAISE [None]
  - PAIN [None]
  - PALPITATIONS [None]
  - HEADACHE [None]
  - PYREXIA [None]
  - NAUSEA [None]
